FAERS Safety Report 8321557 (Version 9)
Quarter: 2014Q1

REPORT INFORMATION
  Report Type: Spontaneous
  Country: JP (occurrence: JP)
  Receive Date: 20120104
  Receipt Date: 20140121
  Transmission Date: 20141002
  Serious: Yes (Hospitalization, Other)
  Sender: FDA-Public Use
  Company Number: JP-ROCHE-1025884

PATIENT
  Age: 55 Year
  Sex: Male

DRUGS (7)
  1. ROCEPHIN [Concomitant]
     Route: 051
  2. VALIXA [Suspect]
     Indication: CYTOMEGALOVIRUS INFECTION
     Route: 048
     Dates: start: 20111213, end: 20111222
  3. VALIXA [Suspect]
     Route: 048
     Dates: start: 20120118
  4. VALIXA [Suspect]
     Dosage: FOR 8 DAYS
     Route: 065
  5. FAMOTIDINE [Suspect]
     Indication: PEPTIC ULCER
     Route: 065
  6. DENOSINE [Suspect]
     Indication: CYTOMEGALOVIRUS INFECTION
     Route: 041
  7. DENOSINE [Suspect]
     Route: 041
     Dates: start: 20111202, end: 20111212

REACTIONS (3)
  - Renal impairment [Recovered/Resolved]
  - Delirium [Recovered/Resolved]
  - Toxic encephalopathy [Recovering/Resolving]
